FAERS Safety Report 6312319-8 (Version None)
Quarter: 2009Q3

REPORT INFORMATION
  Report Type: 
  Country: None (occurrence: None)
  Receive Date: 20090817
  Receipt Date: 20090804
  Transmission Date: 20100115
  Serious: Yes (Life-Threatening, Hospitalization)
  Sender: FDA-Public Use
  Company Number: US-ROCHE-648465

PATIENT
  Age: 45 Year
  Sex: Male

DRUGS (9)
  1. PEGASYS [Suspect]
     Indication: HEPATITIS C
     Route: 065
     Dates: start: 20081021
  2. RIBAVIRIN [Suspect]
     Indication: HEPATITIS C
     Route: 065
     Dates: start: 20081021
  3. MILK THISTLE [Concomitant]
  4. MULTIVITAMIN NOS [Concomitant]
  5. ASPIRIN [Concomitant]
     Dosage: DRUG REPORTED AS BABY ASPIRIN
  6. BENADRYL [Concomitant]
  7. FENERGAN [Concomitant]
  8. KLONOPIN [Concomitant]
  9. LAMICTAL [Concomitant]

REACTIONS (7)
  - ABDOMINAL DISTENSION [None]
  - COMA [None]
  - FATIGUE [None]
  - GASTROINTESTINAL HAEMORRHAGE [None]
  - RENAL FAILURE ACUTE [None]
  - SEPSIS [None]
  - SKIN INFECTION [None]
